FAERS Safety Report 15361593 (Version 1)
Quarter: 2018Q3

REPORT INFORMATION
  Report Type: Spontaneous
  Country: US (occurrence: US)
  Receive Date: 20180831
  Receipt Date: 20180831
  Transmission Date: 20181010
  Serious: Yes (Disabling)
  Sender: FDA-Public Use
  Company Number: None

PATIENT
  Age: 29 Year
  Sex: Female
  Weight: 56.7 kg

DRUGS (5)
  1. DIGESTIVE ENZYMES [Concomitant]
     Active Substance: UNSPECIFIED INGREDIENT
  2. GASTRIC ACID [Concomitant]
  3. PROBIOTICS [Concomitant]
     Active Substance: PROBIOTICS NOS
  4. IRON [Concomitant]
     Active Substance: IRON
  5. CIPROFLOXACIN 500 MG TAB [Suspect]
     Active Substance: CIPROFLOXACIN
     Indication: URINARY TRACT INFECTION
     Dosage: ?          QUANTITY:1 CAPSULE(S);?
     Route: 048
     Dates: start: 20180802, end: 20180802

REACTIONS (5)
  - Paraesthesia [None]
  - Muscle tightness [None]
  - Dyskinesia [None]
  - Arthropathy [None]
  - Tinnitus [None]

NARRATIVE: CASE EVENT DATE: 20180802
